FAERS Safety Report 6703395-9 (Version None)
Quarter: 2010Q2

REPORT INFORMATION
  Report Type: 
  Country: None (occurrence: None)
  Receive Date: 20100428
  Receipt Date: 20100423
  Transmission Date: 20101027
  Serious: Yes (Hospitalization)
  Sender: FDA-Public Use
  Company Number: 2009SP041374

PATIENT
  Age: 32 Year
  Sex: Male

DRUGS (1)
  1. CELESTONE [Suspect]
     Indication: RASH
     Dosage: 0.5 MG; BID;
     Dates: end: 20091214

REACTIONS (3)
  - CONFUSIONAL STATE [None]
  - HALLUCINATION [None]
  - WHITE BLOOD CELL COUNT INCREASED [None]
